FAERS Safety Report 7522793-7 (Version None)
Quarter: 2011Q2

REPORT INFORMATION
  Report Type: 
  Country: None (occurrence: None)
  Receive Date: 20110603
  Receipt Date: 20110524
  Transmission Date: 20111010
  Serious: Yes (Disabling, Other)
  Sender: FDA-Public Use
  Company Number: JP-PFIZER INC-2011054451

PATIENT
  Sex: Male

DRUGS (5)
  1. LIPITOR [Suspect]
     Dosage: 10 MG, DAILY
     Route: 048
  2. CARVEDILOL [Concomitant]
     Route: 048
  3. LAFUTIDINE [Concomitant]
     Dosage: UNK
     Route: 048
  4. ASPIRIN [Concomitant]
     Dosage: UNK
     Dates: start: 20101231
  5. PLAVIX [Concomitant]
     Dosage: UNK
     Route: 048
     Dates: start: 20101231

REACTIONS (2)
  - EOSINOPHIL COUNT INCREASED [None]
  - HEPATIC FUNCTION ABNORMAL [None]
